FAERS Safety Report 10504562 (Version 3)
Quarter: 2014Q4

REPORT INFORMATION
  Report Type: Spontaneous
  Country: FR (occurrence: FR)
  Receive Date: 20141008
  Receipt Date: 20141208
  Transmission Date: 20150528
  Serious: Yes (Hospitalization)
  Sender: FDA-Public Use
  Company Number: FR-ACTELION-A-CH2014-106042

PATIENT
  Age: 15 Month
  Sex: Male
  Weight: 6.8 kg

DRUGS (6)
  1. COLIMICIN [Concomitant]
     Active Substance: COLISTIN SULFATE
     Dosage: UNK UNK, BID
     Route: 055
  2. TRACLEER [Suspect]
     Active Substance: BOSENTAN\BOSENTAN MONOHYDRATE
     Indication: PULMONARY ARTERIAL HYPERTENSION
     Dosage: 1 MG/KG, UNK
     Route: 048
     Dates: start: 20140925, end: 20140930
  3. OXYGEN. [Concomitant]
     Active Substance: OXYGEN
     Dosage: 0.5 L/MIN, UNK
  4. SILDENAFIL. [Concomitant]
     Active Substance: SILDENAFIL
     Dosage: 8 MG/KG, QD
  5. FUMAFER [Concomitant]
     Active Substance: FERROUS FUMARATE
     Dosage: UNK
  6. LASILIX [Concomitant]
     Active Substance: FUROSEMIDE
     Dosage: 1 MG/KG, UNK

REACTIONS (5)
  - Aspartate aminotransferase increased [Recovered/Resolved]
  - Alanine aminotransferase increased [Recovered/Resolved]
  - Blood alkaline phosphatase increased [Recovered/Resolved]
  - Hepatocellular injury [Recovered/Resolved]
  - Gamma-glutamyltransferase increased [Recovered/Resolved]

NARRATIVE: CASE EVENT DATE: 20140929
